FAERS Safety Report 23700144 (Version 4)
Quarter: 2025Q3

REPORT INFORMATION
  Report Type: Report from Study
  Country: EU (occurrence: EU)
  Receive Date: 20240403
  Receipt Date: 20250704
  Transmission Date: 20251020
  Serious: No
  Sender: ROCHE
  Company Number: EU-ROCHE-3053629

PATIENT
  Age: 40 Year
  Sex: Female
  Weight: 125.0 kg

DRUGS (4)
  1. OCREVUS [Suspect]
     Active Substance: OCRELIZUMAB
     Indication: Relapsing multiple sclerosis
     Route: 042
     Dates: start: 20190103, end: 20190124
  2. OCREVUS [Suspect]
     Active Substance: OCRELIZUMAB
     Route: 042
     Dates: start: 20190808
  3. COMIRNATY [Concomitant]
     Indication: COVID-19 immunisation
     Route: 030
     Dates: start: 20210416, end: 20210416
  4. COMIRNATY [Concomitant]
     Route: 030
     Dates: start: 20210521, end: 20210521

REACTIONS (4)
  - Schizophreniform disorder [Recovered/Resolved]
  - Hallucination [Recovered/Resolved]
  - Delusion [Recovered/Resolved]
  - Acute psychosis [Recovered/Resolved]

NARRATIVE: CASE EVENT DATE: 20200501
